FAERS Safety Report 4633107-4 (Version None)
Quarter: 2005Q2

REPORT INFORMATION
  Report Type: 
  Country: None (occurrence: None)
  Receive Date: 20050411
  Receipt Date: 20050411
  Transmission Date: 20051028
  Serious: No
  Sender: FDA-Public Use
  Company Number: None

PATIENT
  Age: 23 Year
  Sex: Female
  Weight: 62.1428 kg

DRUGS (2)
  1. LEXAPRO [Suspect]
     Indication: ANXIETY
     Dosage: 10 MG A DAY ORAL
     Route: 048
     Dates: start: 20030123, end: 20030202
  2. LEXAPRO [Suspect]
     Indication: INSOMNIA
     Dosage: 10 MG A DAY ORAL
     Route: 048
     Dates: start: 20030123, end: 20030202

REACTIONS (4)
  - COMPLETED SUICIDE [None]
  - CONDITION AGGRAVATED [None]
  - DISORIENTATION [None]
  - INSOMNIA [None]
